FAERS Safety Report 5452995-5 (Version None)
Quarter: 2007Q3

REPORT INFORMATION
  Report Type: 
  Country: None (occurrence: None)
  Receive Date: 20070914
  Receipt Date: 20070904
  Transmission Date: 20080115
  Serious: Yes (Hospitalization)
  Sender: FDA-Public Use
  Company Number: US-GENENTECH-247173

PATIENT
  Age: 71 Year
  Sex: Male

DRUGS (2)
  1. BEVACIZUMAB [Suspect]
     Indication: RENAL CELL CARCINOMA STAGE UNSPECIFIED
     Dosage: 5 MG/KG, Q2W
     Route: 042
     Dates: start: 20061019, end: 20070726
  2. BAY 43-9006 [Suspect]
     Indication: RENAL CELL CARCINOMA STAGE UNSPECIFIED
     Dosage: 200 MG, UNK
     Route: 048
     Dates: start: 20061019, end: 20070726

REACTIONS (2)
  - DISEASE PROGRESSION [None]
  - MYOCARDIAL ISCHAEMIA [None]
